FAERS Safety Report 4384837-3 (Version None)
Quarter: 2004Q2

REPORT INFORMATION
  Report Type: 
  Country: None (occurrence: None)
  Receive Date: 20040623
  Receipt Date: 20040610
  Transmission Date: 20050107
  Serious: Yes (Death)
  Sender: FDA-Public Use
  Company Number: 2004S1001702

PATIENT
  Age: 86 Year
  Sex: Male

DRUGS (6)
  1. CLOZAPINE [Suspect]
     Dosage: 12.5 MG QD ORAL
     Route: 048
  2. ENTACAPONE [Concomitant]
  3. MODAFINIL [Concomitant]
  4. LEVOTHYROXINE SODIUM [Concomitant]
  5. ESCITOLAPRAM OXALATE [Concomitant]
  6. LANSOPRAZOLE [Concomitant]

REACTIONS (1)
  - DEATH [None]
